FAERS Safety Report 7879738-X (Version None)
Quarter: 2011Q4

REPORT INFORMATION
  Report Type: 
  Country: None (occurrence: None)
  Receive Date: 20111101
  Receipt Date: 20111024
  Transmission Date: 20120403
  Serious: Yes (Hospitalization, Other)
  Sender: FDA-Public Use
  Company Number: US-US-EMD SERONO, INC.-7060728

PATIENT
  Sex: Female

DRUGS (2)
  1. THYROID MEDICATION [Concomitant]
     Indication: HYPOTHYROIDISM
  2. REBIF [Suspect]
     Indication: PRODUCT USED FOR UNKNOWN INDICATION
     Route: 058
     Dates: start: 20110110

REACTIONS (8)
  - BRAIN NEOPLASM [None]
  - TYPE 2 DIABETES MELLITUS [None]
  - WEIGHT INCREASED [None]
  - ALOPECIA [None]
  - HEPATIC ENZYME INCREASED [None]
  - SKIN DISCOLOURATION [None]
  - GOITRE [None]
  - THYROID FUNCTION TEST ABNORMAL [None]
